FAERS Safety Report 15871814 (Version 1)
Quarter: 2019Q1

REPORT INFORMATION
  Report Type: Other
  Country: US (occurrence: US)
  Receive Date: 20190126
  Receipt Date: 20190126
  Transmission Date: 20190417
  Serious: Yes (Other)
  Sender: FDA-Public Use
  Company Number: US-ACORDA-ACO_147430_2018

PATIENT
  Age: 72 Year
  Sex: Female

DRUGS (2)
  1. AMPYRA [Suspect]
     Active Substance: DALFAMPRIDINE
     Indication: GAIT DISTURBANCE
     Dosage: 10 MG, Q 12 HRS
     Route: 048
     Dates: start: 201410
  2. AMPYRA [Suspect]
     Active Substance: DALFAMPRIDINE
     Indication: MULTIPLE SCLEROSIS

REACTIONS (5)
  - Pubis fracture [Unknown]
  - Fractured sacrum [Unknown]
  - Osteoarthritis [Unknown]
  - Fall [Unknown]
  - Acetabulum fracture [Unknown]

NARRATIVE: CASE EVENT DATE: 201801
